FAERS Safety Report 20814553 (Version 7)
Quarter: 2024Q1

REPORT INFORMATION
  Report Type: Spontaneous
  Country: GB (occurrence: NO)
  Receive Date: 20220511
  Receipt Date: 20240223
  Transmission Date: 20240409
  Serious: Yes (Hospitalization, Other)
  Sender: FDA-Public Use
  Company Number: GB-CELGENE-GBR-20220204495

PATIENT
  Age: 67 Year
  Sex: Female
  Weight: 76.2 kg

DRUGS (53)
  1. LENALIDOMIDE [Suspect]
     Active Substance: LENALIDOMIDE
     Indication: Follicular lymphoma
     Dosage: 20 MILLIGRAM, BID
     Route: 048
     Dates: start: 20220118, end: 20220202
  2. LENALIDOMIDE [Suspect]
     Active Substance: LENALIDOMIDE
     Indication: Follicular lymphoma
     Dosage: 20 MILLIGRAM, QD
     Route: 048
     Dates: start: 20220118, end: 20220202
  3. CETIRIZINE [Concomitant]
     Active Substance: CETIRIZINE HYDROCHLORIDE
     Indication: Product used for unknown indication
     Dosage: 10 MILLIGRAM, QD, DURATION: 14 DAYS
     Route: 048
     Dates: start: 20220118, end: 20220207
  4. CETIRIZINE [Concomitant]
     Active Substance: CETIRIZINE HYDROCHLORIDE
     Indication: Product used for unknown indication
     Dosage: 15 MILLIGRAM, QD DURATION: 15 DAYS
     Route: 048
     Dates: start: 20220118, end: 20220201
  5. EXFORGE [Concomitant]
     Active Substance: AMLODIPINE BESYLATE\VALSARTAN
     Indication: Product used for unknown indication
     Dosage: UNK UNK, QD
     Route: 065
     Dates: start: 202001
  6. FRAGMIN [Concomitant]
     Active Substance: DALTEPARIN SODIUM
     Indication: Product used for unknown indication
     Dosage: UNK UNK, QD, DURATION: 54 DAYS
     Route: 065
     Dates: start: 20211215, end: 20220206
  7. FUROSEMIDE [Concomitant]
     Active Substance: FUROSEMIDE
     Indication: Product used for unknown indication
     Dosage: UNK, DURATION: 2 DAYS
     Route: 065
     Dates: start: 20220125, end: 20220126
  8. JANUMET [Concomitant]
     Active Substance: METFORMIN HYDROCHLORIDE\SITAGLIPTIN PHOSPHATE
     Indication: Product used for unknown indication
     Dosage: UNK UNK, QD
     Route: 048
     Dates: start: 2012
  9. JANUMET [Concomitant]
     Active Substance: METFORMIN HYDROCHLORIDE\SITAGLIPTIN PHOSPHATE
     Indication: Product used for unknown indication
     Dosage: UNK, DURATION: 3 DAYS
     Route: 065
     Dates: start: 20220123, end: 20220125
  10. LACTULOSE [Concomitant]
     Active Substance: LACTULOSE
     Indication: Product used for unknown indication
     Dosage: UNK UNK, QD, DURATION: 9 DAYS
     Route: 065
     Dates: start: 20220125, end: 20220202
  11. SODIUM PICOSULFATE [Concomitant]
     Active Substance: SODIUM PICOSULFATE
     Indication: Product used for unknown indication
     Dosage: UNK
     Route: 065
     Dates: start: 20220125
  12. LEVOTHYROXINE SODIUM [Concomitant]
     Active Substance: LEVOTHYROXINE SODIUM
     Indication: Product used for unknown indication
     Dosage: UNK, QD
     Route: 065
     Dates: start: 2007
  13. LIPITOR [Concomitant]
     Active Substance: ATORVASTATIN CALCIUM
     Indication: Product used for unknown indication
     Dosage: UNK UNK, QD
     Route: 065
     Dates: start: 2018
  14. MAGNESIUM [Concomitant]
     Active Substance: MAGNESIUM
     Indication: Product used for unknown indication
     Dosage: UNK UNK, QD, DURATION: 245 DAYS
     Route: 065
     Dates: start: 20220125, end: 20220926
  15. ONDANSETRON [Concomitant]
     Active Substance: ONDANSETRON
     Indication: Product used for unknown indication
     Dosage: UNK
     Route: 065
     Dates: start: 20220902, end: 20220902
  16. METFORMIN [Concomitant]
     Active Substance: METFORMIN HYDROCHLORIDE
     Indication: Product used for unknown indication
     Dosage: UNK, DURATION: 3 DAYS
     Route: 065
     Dates: start: 20220123, end: 20220125
  17. METFORMIN [Concomitant]
     Active Substance: METFORMIN HYDROCHLORIDE
     Indication: Product used for unknown indication
     Dosage: UNK
     Route: 065
     Dates: start: 20220123, end: 20220125
  18. PANTOPRAZOLE SODIUM [Concomitant]
     Active Substance: PANTOPRAZOLE SODIUM
     Indication: Product used for unknown indication
     Dosage: UNK UNK, QD
     Route: 065
     Dates: start: 20220111
  19. PANTOPRAZOLE SODIUM [Concomitant]
     Active Substance: PANTOPRAZOLE SODIUM
     Indication: Product used for unknown indication
     Dosage: UNK UNK, QD
     Route: 065
     Dates: start: 20220111
  20. ACETAMINOPHEN [Concomitant]
     Active Substance: ACETAMINOPHEN
     Indication: Product used for unknown indication
     Dosage: UNK UNK, QD, DURATION: 21 DAYS
     Route: 065
     Dates: start: 20220118, end: 20220207
  21. ACETAMINOPHEN [Concomitant]
     Active Substance: ACETAMINOPHEN
     Indication: Product used for unknown indication
     Dosage: UNK, QD, DURATION: 15 DAYS
     Route: 065
     Dates: start: 20220118, end: 20220201
  22. NOVORAPID [Concomitant]
     Active Substance: INSULIN ASPART
     Indication: Product used for unknown indication
     Dosage: UNK
     Route: 065
     Dates: start: 20220202
  23. LENALIDOMIDE [Suspect]
     Active Substance: LENALIDOMIDE
     Indication: B-cell lymphoma
     Dosage: 0.16 MILLIGRAM
     Route: 042
     Dates: start: 20220207
  24. PREDNISOLONE [Concomitant]
     Active Substance: PREDNISOLONE
     Indication: Prophylaxis
     Dosage: 100 MG, QD
     Route: 065
     Dates: start: 20220118, end: 20220121
  25. PREDNISOLONE [Concomitant]
     Active Substance: PREDNISOLONE
     Indication: Prophylaxis
     Dosage: UNK UNK, QD
     Route: 065
     Dates: start: 20220111, end: 20220117
  26. PREDNISOLONE [Concomitant]
     Active Substance: PREDNISOLONE
     Indication: Prophylaxis
     Dosage: 100 MILLIGRAM, QD
     Route: 065
     Dates: start: 20220125, end: 20220128
  27. PREDNISOLONE [Concomitant]
     Active Substance: PREDNISOLONE
     Indication: Prophylaxis
     Dosage: 100 MG
     Route: 065
     Dates: start: 20220201, end: 20220204
  28. PREDNISOLONE [Concomitant]
     Active Substance: PREDNISOLONE
     Indication: Prophylaxis
     Dosage: 100 MILLIGRAM, DURATION: 6 DAYS
     Route: 065
     Dates: start: 20220118, end: 20220121
  29. PREDNISOLONE [Concomitant]
     Active Substance: PREDNISOLONE
     Indication: Prophylaxis
     Dosage: 100 MILLIGRAM, DURATION: 6 DAYS
     Route: 065
     Dates: start: 20220111, end: 20220117
  30. SODIUM CHLORIDE [Concomitant]
     Active Substance: SODIUM CHLORIDE
     Indication: Product used for unknown indication
     Dosage: UNK, DURATION: 1 DAY
     Route: 065
     Dates: start: 20220118, end: 20220119
  31. VALTREX [Concomitant]
     Active Substance: VALACYCLOVIR HYDROCHLORIDE
     Indication: Product used for unknown indication
     Dosage: UNK UNK, QD, DURATION: 343 DAYS
     Route: 065
     Dates: start: 20220111, end: 20221219
  32. VALTREX [Concomitant]
     Active Substance: VALACYCLOVIR HYDROCHLORIDE
     Indication: Product used for unknown indication
     Dosage: UNK UNK, QD, DURATION: 343 DAYS
     Route: 065
     Dates: start: 20220111, end: 20221219
  33. EPCORITAMAB [Suspect]
     Active Substance: EPCORITAMAB
     Indication: Follicular lymphoma
     Dosage: 48 MILLIGRAM
     Route: 042
     Dates: start: 20220301
  34. EPCORITAMAB [Suspect]
     Active Substance: EPCORITAMAB
     Indication: Follicular lymphoma
     Dosage: 0.16 MG
     Route: 042
     Dates: start: 20220207
  35. EPCORITAMAB [Suspect]
     Active Substance: EPCORITAMAB
     Indication: Follicular lymphoma
     Dosage: 48 MILLIGRAM
     Route: 042
     Dates: start: 20220201
  36. EPCORITAMAB [Suspect]
     Active Substance: EPCORITAMAB
     Indication: Follicular lymphoma
     Dosage: 0.16 MILLIGRAM
     Route: 042
     Dates: start: 20210118
  37. EPCORITAMAB [Suspect]
     Active Substance: EPCORITAMAB
     Indication: Follicular lymphoma
     Dosage: 48 MILLIGRAM
     Route: 042
     Dates: start: 20220307
  38. EPCORITAMAB [Suspect]
     Active Substance: EPCORITAMAB
     Indication: Follicular lymphoma
     Dosage: 0.8 MILLIGRAM, ONCE A DAY, DURATION: 366 DAYS
     Route: 042
     Dates: start: 20210125, end: 20220125
  39. EPCORITAMAB [Suspect]
     Active Substance: EPCORITAMAB
     Indication: Follicular lymphoma
     Dosage: 48 MILLIGRAM
     Route: 042
     Dates: start: 20220221
  40. EPCORITAMAB [Suspect]
     Active Substance: EPCORITAMAB
     Indication: Follicular lymphoma
     Dosage: UNK
     Route: 042
  41. EPCORITAMAB [Suspect]
     Active Substance: EPCORITAMAB
     Indication: Follicular lymphoma
     Dosage: UNK
     Route: 065
  42. EPCORITAMAB [Suspect]
     Active Substance: EPCORITAMAB
     Indication: Follicular lymphoma
     Dosage: 0.8 MG, QD, DURATION: 721 DAYS
     Route: 042
     Dates: start: 20210125, end: 20230115
  43. EPCORITAMAB [Suspect]
     Active Substance: EPCORITAMAB
     Indication: Follicular lymphoma
     Dosage: 48 MILLIGRAM
     Route: 042
     Dates: start: 20220214
  44. EPCORITAMAB [Suspect]
     Active Substance: EPCORITAMAB
     Indication: Follicular lymphoma
     Dosage: UNK UNK, QD, DURATION: 1 DAY
     Route: 042
     Dates: start: 20220118, end: 20220118
  45. RITUXIMAB [Suspect]
     Active Substance: RITUXIMAB
     Indication: B-cell lymphoma
     Dosage: 375 MG/M2
     Route: 042
     Dates: start: 20220201
  46. RITUXIMAB [Suspect]
     Active Substance: RITUXIMAB
     Indication: B-cell lymphoma
     Dosage: 375 MILLIGRAM/SQ. METER
     Route: 065
  47. RITUXIMAB [Suspect]
     Active Substance: RITUXIMAB
     Indication: B-cell lymphoma
     Dosage: 375 MG/M2, QW (53.5714 MILLIGRAM/SQ. METER)
     Route: 042
     Dates: start: 20220118
  48. RITUXIMAB [Suspect]
     Active Substance: RITUXIMAB
     Indication: B-cell lymphoma
     Dosage: 375 MILLIGRAM/SQ. METER
     Route: 065
     Dates: start: 20220201
  49. METFORMIN HYDROCHLORIDE\SITAGLIPTIN [Concomitant]
     Active Substance: METFORMIN HYDROCHLORIDE\SITAGLIPTIN
     Indication: Product used for unknown indication
     Dosage: UNK, DURATION: 3 DAYS
     Route: 065
     Dates: start: 20220123, end: 20220125
  50. ALLOPURINOL [Concomitant]
     Active Substance: ALLOPURINOL
     Indication: Product used for unknown indication
     Dosage: UNK, QD, DURATION: 28 DAYS
     Route: 065
     Dates: start: 20220118, end: 20220214
  51. ALLOPURINOL [Concomitant]
     Active Substance: ALLOPURINOL
     Indication: Product used for unknown indication
     Dosage: UNK
  52. BACTRIM [Concomitant]
     Active Substance: SULFAMETHOXAZOLE\TRIMETHOPRIM
     Indication: Product used for unknown indication
     Dosage: UNK, QD, DURATION: 343 DAYS
     Route: 065
     Dates: start: 20220111, end: 20221219
  53. SITAGLIPTIN [Concomitant]
     Active Substance: SITAGLIPTIN
     Indication: Product used for unknown indication
     Dosage: UNK, DURATION: 3 DAYS
     Dates: start: 20220123, end: 20220125

REACTIONS (5)
  - Pneumocystis jirovecii pneumonia [Unknown]
  - Cytokine release syndrome [Recovered/Resolved]
  - Intentional product use issue [Unknown]
  - Product use issue [Unknown]
  - Off label use [Unknown]

NARRATIVE: CASE EVENT DATE: 20220123
